FAERS Safety Report 23396566 (Version 2)
Quarter: 2024Q1

REPORT INFORMATION
  Report Type: Spontaneous
  Country: US (occurrence: US)
  Receive Date: 20240112
  Receipt Date: 20240119
  Transmission Date: 20240410
  Serious: Yes (Death, Hospitalization, Other)
  Sender: FDA-Public Use
  Company Number: US-SA-SAC20240109001734

PATIENT
  Age: 23 Year
  Sex: Female

DRUGS (14)
  1. INSULIN LISPRO [Suspect]
     Active Substance: INSULIN LISPRO
     Indication: Suspected suicide attempt
     Dosage: UNK
     Route: 048
  2. INSULIN LISPRO [Suspect]
     Active Substance: INSULIN LISPRO
     Dosage: UNK
     Route: 051
  3. HYDROXYCHLOROQUINE [Suspect]
     Active Substance: HYDROXYCHLOROQUINE
     Indication: Suspected suicide attempt
     Dosage: UNK
     Route: 048
  4. HYDROXYCHLOROQUINE [Suspect]
     Active Substance: HYDROXYCHLOROQUINE
     Dosage: UNK
     Route: 051
  5. LAMOTRIGINE [Suspect]
     Active Substance: LAMOTRIGINE
     Indication: Suspected suicide attempt
     Dosage: UNK
     Route: 048
  6. LAMOTRIGINE [Suspect]
     Active Substance: LAMOTRIGINE
     Dosage: UNK
     Route: 051
  7. QUETIAPINE FUMARATE [Suspect]
     Active Substance: QUETIAPINE FUMARATE
     Indication: Suspected suicide attempt
     Dosage: UNK
     Route: 048
  8. QUETIAPINE FUMARATE [Suspect]
     Active Substance: QUETIAPINE FUMARATE
     Dosage: UNK
     Route: 051
  9. LEVOTHYROXINE SODIUM [Suspect]
     Active Substance: LEVOTHYROXINE SODIUM
     Indication: Suspected suicide attempt
     Dosage: UNK
     Route: 048
  10. LEVOTHYROXINE SODIUM [Suspect]
     Active Substance: LEVOTHYROXINE SODIUM
     Dosage: UNK
     Route: 051
  11. LORAZEPAM [Suspect]
     Active Substance: LORAZEPAM
     Indication: Suspected suicide attempt
     Dosage: UNK
     Route: 048
  12. INSULIN DETEMIR [Suspect]
     Active Substance: INSULIN DETEMIR
     Indication: Suspected suicide attempt
     Dosage: UNK
     Route: 048
  13. INSULIN DETEMIR [Suspect]
     Active Substance: INSULIN DETEMIR
     Dosage: UNK
     Route: 051
  14. METHOTREXATE [Suspect]
     Active Substance: METHOTREXATE
     Indication: Suspected suicide attempt
     Dosage: UNK
     Route: 048

REACTIONS (1)
  - Completed suicide [Fatal]
